FAERS Safety Report 13670902 (Version 1)
Quarter: 2017Q2

REPORT INFORMATION
  Report Type: Spontaneous
  Country: US (occurrence: US)
  Receive Date: 20170620
  Receipt Date: 20170620
  Transmission Date: 20170830
  Serious: No
  Sender: FDA-Public Use
  Company Number: US-ROCHE-710854

PATIENT
  Age: 68 Year
  Sex: Female
  Weight: 85 kg

DRUGS (4)
  1. ERBITUX [Concomitant]
     Active Substance: CETUXIMAB
     Route: 042
  2. OXALIPLATIN. [Concomitant]
     Active Substance: OXALIPLATIN
     Route: 042
  3. XELODA [Suspect]
     Active Substance: CAPECITABINE
     Indication: METASTASES TO LIVER
     Dosage: FREQUENCY: BID X 14 DAYS
     Route: 048
     Dates: start: 20100331, end: 20100402
  4. DECADRON [Concomitant]
     Active Substance: DEXAMETHASONE
     Route: 048

REACTIONS (6)
  - Urticaria [Unknown]
  - Rash [Recovered/Resolved]
  - Dyspnoea [Recovered/Resolved]
  - Chest pain [Unknown]
  - Vomiting [Recovered/Resolved]
  - Dyspepsia [Recovered/Resolved]

NARRATIVE: CASE EVENT DATE: 20100331
